APPROVED DRUG PRODUCT: TELMISARTAN AND HYDROCHLOROTHIAZIDE
Active Ingredient: HYDROCHLOROTHIAZIDE; TELMISARTAN
Strength: 25MG;80MG
Dosage Form/Route: TABLET;ORAL
Application: A204169 | Product #003
Applicant: MACLEODS PHARMACEUTICALS LTD
Approved: Nov 2, 2015 | RLD: No | RS: No | Type: DISCN